FAERS Safety Report 9424733 (Version 1)
Quarter: 2013Q3

REPORT INFORMATION
  Report Type: Spontaneous
  Country: US (occurrence: US)
  Receive Date: 20130729
  Receipt Date: 20130729
  Transmission Date: 20140515
  Serious: Yes (Other)
  Sender: FDA-Public Use
  Company Number: US-JNJFOC-20130710340

PATIENT
  Age: 75 Year
  Sex: Female
  Weight: 62.14 kg

DRUGS (4)
  1. ROGAINE FOR WOMEN REGULAR STRENGTH 2% [Suspect]
     Indication: ALOPECIA
     Route: 061
  2. ROGAINE FOR WOMEN REGULAR STRENGTH 2% [Suspect]
     Indication: ALOPECIA
     Dosage: DROPPER FOR 4 MONTHS
     Route: 061
  3. VITAMIN [Concomitant]
     Indication: MEDICAL DIET
     Route: 065
  4. VITAMIN D3 [Concomitant]
     Indication: MEDICAL DIET
     Dosage: STARTED TAKING SINCE LAST 2 YEARS AGO
     Route: 065

REACTIONS (3)
  - Mental impairment [Unknown]
  - Pain [Unknown]
  - Hair texture abnormal [Unknown]
